FAERS Safety Report 15139791 (Version 2)
Quarter: 2019Q1

REPORT INFORMATION
  Report Type: Spontaneous
  Country: US (occurrence: US)
  Receive Date: 20180713
  Receipt Date: 20190205
  Transmission Date: 20190417
  Serious: Yes (Other)
  Sender: FDA-Public Use
  Company Number: US-SA-2018SA181372

PATIENT
  Age: 46 Year
  Sex: Female

DRUGS (1)
  1. AUBAGIO [Suspect]
     Active Substance: TERIFLUNOMIDE
     Indication: MULTIPLE SCLEROSIS
     Dosage: UNK
     Route: 048
     Dates: start: 201802

REACTIONS (4)
  - Product use issue [Unknown]
  - Multiple sclerosis relapse [Unknown]
  - Loss of consciousness [Unknown]
  - Dizziness [Unknown]
